FAERS Safety Report 16136297 (Version 1)
Quarter: 2019Q1

REPORT INFORMATION
  Report Type: Spontaneous
  Country: GR (occurrence: GR)
  Receive Date: 20190329
  Receipt Date: 20190329
  Transmission Date: 20190418
  Serious: Yes (Other)
  Sender: FDA-Public Use
  Company Number: GR-ENDO PHARMACEUTICALS INC-2019-103292

PATIENT
  Sex: Female

DRUGS (1)
  1. VASOSTRICT [Suspect]
     Active Substance: VASOPRESSIN
     Indication: PROCEDURAL HAEMORRHAGE
     Dosage: 20 IU/100 ML, SINGLE
     Route: 015

REACTIONS (2)
  - Off label use [Unknown]
  - Ventricular extrasystoles [Recovered/Resolved]
